FAERS Safety Report 10061326 (Version 3)
Quarter: 2014Q2

REPORT INFORMATION
  Report Type: Spontaneous
  Country: JP (occurrence: JP)
  Receive Date: 20140407
  Receipt Date: 20140602
  Transmission Date: 20141212
  Serious: Yes (Hospitalization, Other)
  Sender: FDA-Public Use
  Company Number: JP-UCBSA-114243

PATIENT
  Age: 61 Year
  Sex: Female

DRUGS (16)
  1. E KEPPRA [Suspect]
     Dosage: 500MG DAILY
     Route: 048
     Dates: start: 20130906, end: 20130925
  2. E KEPPRA [Suspect]
     Dosage: 500 MG, 2X/DAY (BID)
     Route: 048
     Dates: start: 20130926, end: 20131127
  3. E KEPPRA [Suspect]
     Dosage: 750MG DAILY (DIVIDED INTO 250MG, 500MG)
     Route: 048
     Dates: start: 20131128
  4. E KEPPRA [Suspect]
     Dosage: 500 MG, 2X/DAY (BID)
     Route: 048
     Dates: start: 20140110, end: 20140221
  5. ALEVIATIN [Suspect]
     Indication: EPILEPSY
     Dosage: 1.5G DAILY
     Route: 048
     Dates: start: 20130628, end: 20130705
  6. ALEVIATIN [Suspect]
     Dosage: 2G DAILY
     Route: 048
     Dates: start: 20130705, end: 20130719
  7. ALEVIATIN [Suspect]
     Dosage: 1.5G DAILY
     Route: 048
     Dates: start: 20130719, end: 20130809
  8. ALEVIATIN [Suspect]
     Dosage: 1G DAILY
     Route: 048
     Dates: start: 20130809, end: 20130925
  9. ALEVIATIN [Suspect]
     Dosage: 1.5G DAILY
     Route: 048
     Dates: start: 20140110, end: 20140222
  10. LANDSEN [Concomitant]
     Dosage: 0.5MG DAILY
     Route: 048
     Dates: start: 20130627, end: 20130830
  11. LANDSEN [Concomitant]
     Dosage: 1MG DAILY
     Route: 048
     Dates: start: 20130831
  12. ABILIFY [Concomitant]
     Indication: PSYCHOTIC DISORDER DUE TO A GENERAL MEDICAL CONDITION
     Dosage: 9MG DAILY
     Route: 048
     Dates: start: 20121127, end: 20130719
  13. ABILIFY [Concomitant]
     Dosage: 6MG DAILY
     Route: 048
     Dates: start: 20130719, end: 20140104
  14. SEROQUEL [Concomitant]
     Indication: PSYCHOTIC DISORDER DUE TO A GENERAL MEDICAL CONDITION
     Dosage: 50MG DAILY
     Route: 048
     Dates: start: 20130705, end: 20130809
  15. SEROQUEL [Concomitant]
     Indication: INSOMNIA
     Dosage: 75MG DAILY
     Route: 048
     Dates: start: 20130809, end: 20131009
  16. SEROQUEL [Concomitant]
     Dosage: 25MG DAILY
     Route: 048
     Dates: start: 20131010, end: 20131016

REACTIONS (3)
  - Hyperammonaemia [Unknown]
  - Epilepsy [Recovered/Resolved]
  - Cardio-respiratory arrest [Recovered/Resolved]
